FAERS Safety Report 22067153 (Version 1)
Quarter: 2023Q1

REPORT INFORMATION
  Report Type: Spontaneous
  Country: CA (occurrence: CA)
  Receive Date: 20230307
  Receipt Date: 20230307
  Transmission Date: 20230418
  Serious: Yes (Other)
  Sender: FDA-Public Use
  Company Number: CA-002147023-NVSC2023CA045571

PATIENT
  Age: 68 Year
  Sex: Female

DRUGS (2)
  1. METHOTREXATE [Suspect]
     Active Substance: METHOTREXATE
     Indication: Crohn^s disease
     Dosage: 1 DOSAGE FORM
     Route: 065
  2. FOLIC ACID [Concomitant]
     Active Substance: FOLIC ACID
     Indication: Product used for unknown indication
     Dosage: 1 DOSAGE FORM
     Route: 065

REACTIONS (8)
  - Condition aggravated [Unknown]
  - Abdominal pain [Unknown]
  - Anaemia [Unknown]
  - Anal abscess [Unknown]
  - Diarrhoea [Unknown]
  - Fistula of small intestine [Unknown]
  - Ileal stenosis [Unknown]
  - Treatment failure [Unknown]
